FAERS Safety Report 5213070-8 (Version None)
Quarter: 2007Q1

REPORT INFORMATION
  Report Type: 
  Country: None (occurrence: None)
  Receive Date: 20070119
  Receipt Date: 20070105
  Transmission Date: 20070707
  Serious: Yes (Hospitalization)
  Sender: FDA-Public Use
  Company Number: FR-ROCHE-477392

PATIENT
  Age: 87 Year
  Sex: Female

DRUGS (1)
  1. ROCEPHIN [Suspect]
     Indication: PYELONEPHRITIS
     Route: 065

REACTIONS (4)
  - ANAEMIA [None]
  - NEUTROPENIA [None]
  - PANCYTOPENIA [None]
  - THROMBOCYTOPENIA [None]
